FAERS Safety Report 8458680-X (Version None)
Quarter: 2012Q2

REPORT INFORMATION
  Report Type: 
  Country: None (occurrence: None)
  Receive Date: 20120622
  Receipt Date: 20120619
  Transmission Date: 20120825
  Serious: Yes (Other)
  Sender: FDA-Public Use
  Company Number: FR-VERTEX PHARMACEUTICALS INC.-000000000000000944

PATIENT
  Age: 74 Year
  Sex: Female

DRUGS (3)
  1. PEGASYS [Concomitant]
     Indication: HEPATITIS C
     Dates: start: 20120210
  2. INCIVO [Suspect]
     Indication: HEPATITIS C
     Dosage: DOSAGE FORM: TABLET, FOR 6 WEEKS
     Route: 048
     Dates: start: 20120316, end: 20120427
  3. COPEGUS [Concomitant]
     Indication: HEPATITIS C
     Dates: start: 20120210

REACTIONS (2)
  - RENAL FAILURE [None]
  - HYPERURICAEMIA [None]
